FAERS Safety Report 8247181 (Version 2)
Quarter: 2012Q4

REPORT INFORMATION
  Report Type: 
  Country: US (occurrence: US)
  Receive Date: 20111116
  Receipt Date: 20121008
  Transmission Date: 20130627
  Serious: Yes (Other)
  Sender: FDA-Public Use
  Company Number: PHEH2011US008818

PATIENT
  Sex: Female
  Weight: 66 kg

DRUGS (4)
  1. AREDIA [Suspect]
  2. SENNA [Concomitant]
  3. AMBIEN [Concomitant]
  4. COLACE [Concomitant]

REACTIONS (6)
  - Lymphadenopathy [Unknown]
  - Mass [Unknown]
  - Sciatica [Unknown]
  - Hypoalbuminaemia [Unknown]
  - Anaemia postoperative [Unknown]
  - Paraesthesia [Unknown]
